FAERS Safety Report 5917525-X (Version None)
Quarter: 2008Q4

REPORT INFORMATION
  Report Type: 
  Country: None (occurrence: None)
  Receive Date: 20081010
  Receipt Date: 20081010
  Transmission Date: 20090506
  Serious: Yes (Hospitalization)
  Sender: FDA-Public Use
  Company Number: None

PATIENT
  Age: 46 Year
  Sex: Male
  Weight: 68.0396 kg

DRUGS (2)
  1. NARDIL [Suspect]
     Indication: ANXIETY
     Dosage: 15 MG TWICE A DAY O
     Route: 048
     Dates: start: 20010412, end: 20010419
  2. NARDIL [Suspect]
     Indication: ANXIETY
     Dosage: 15 MG FOUR TIMES A DAY PO, 2-3 WEEKS STARTING 4/19/01
     Route: 048
     Dates: start: 20010419

REACTIONS (19)
  - BALANCE DISORDER [None]
  - BURNING SENSATION [None]
  - CENTRAL NERVOUS SYSTEM LESION [None]
  - CONDITION AGGRAVATED [None]
  - GAIT DISTURBANCE [None]
  - HYPOAESTHESIA [None]
  - IMMUNE SYSTEM DISORDER [None]
  - MICTURITION DISORDER [None]
  - MULTIPLE SCLEROSIS [None]
  - MUSCLE TIGHTNESS [None]
  - MUSCULAR WEAKNESS [None]
  - NERVOUS SYSTEM DISORDER [None]
  - PAIN IN EXTREMITY [None]
  - PARAESTHESIA [None]
  - PRURITUS [None]
  - SENSORY LOSS [None]
  - SPINAL DISORDER [None]
  - STRESS [None]
  - WEIGHT DECREASED [None]
